FAERS Safety Report 6469742-0 (Version None)
Quarter: 2009Q4

REPORT INFORMATION
  Report Type: 
  Country: None (occurrence: None)
  Receive Date: 20091119
  Receipt Date: 20090721
  Transmission Date: 20100525
  Serious: Yes (Other)
  Sender: FDA-Public Use
  Company Number: WAES 0907USA03311

PATIENT
  Age: 72 Year
  Sex: Male
  Weight: 102.0593 kg

DRUGS (22)
  1. JANUVIA [Suspect]
     Indication: DIABETES MELLITUS
     Dosage: 50MG/DAILY/PO
     Route: 048
     Dates: start: 20061106, end: 20090720
  2. ALEVE [Concomitant]
  3. FLOVENT [Concomitant]
  4. METAMUCIL [Concomitant]
  5. NEXIUM [Concomitant]
  6. PEPCID [Concomitant]
  7. PLAVIX [Concomitant]
  8. TRICOR [Concomitant]
  9. VYTORIN [Concomitant]
  10. WELCHOL [Concomitant]
  11. ZOLOFT [Concomitant]
  12. ASPIRIN [Concomitant]
  13. DICYCLOMINE HYDROCHLORIDE [Concomitant]
  14. FUROSEMIDE [Concomitant]
  15. GASTROINTESTINAL PREPARATIONS [Concomitant]
  16. GLIMEPIRIDE [Concomitant]
  17. HYDROCORTISONE ACETATE [Concomitant]
  18. LISINOPRIL [Concomitant]
  19. MECLIZINE [Concomitant]
  20. METOPORLOL [Concomitant]
  21. NITROGLYCERIN [Concomitant]
  22. NORTRIPTYLINE [Concomitant]

REACTIONS (1)
  - PANCREATITIS [None]
